FAERS Safety Report 9470577 (Version 2)
Quarter: 2013Q4

REPORT INFORMATION
  Report Type: Report from Study
  Country: CA (occurrence: CA)
  Receive Date: 20130822
  Receipt Date: 20131222
  Transmission Date: 20140711
  Serious: Yes (Other)
  Sender: FDA-Public Use
  Company Number: CA-SANOFI-AVENTIS-2013SA083767

PATIENT
  Age: 54 Year
  Sex: 0

DRUGS (4)
  1. ELOXATIN [Suspect]
     Indication: COLORECTAL CANCER
     Route: 065
     Dates: start: 20120314, end: 20120704
  2. AVASTIN [Suspect]
     Indication: COLORECTAL CANCER
     Dosage: FORM-SOLUTION INTRAVENOUS
     Route: 065
     Dates: start: 20120314, end: 20120704
  3. FLUOROURACIL [Suspect]
     Indication: COLORECTAL CANCER
     Route: 065
     Dates: start: 20120314, end: 20120704
  4. LEUCOVORIN [Suspect]
     Indication: COLORECTAL CANCER
     Route: 065
     Dates: start: 20120314, end: 20120704

REACTIONS (2)
  - Colorectal cancer [Unknown]
  - Disease progression [Unknown]
